FAERS Safety Report 6726135-6 (Version None)
Quarter: 2010Q2

REPORT INFORMATION
  Report Type: 
  Country: None (occurrence: None)
  Receive Date: 20100514
  Receipt Date: 20100503
  Transmission Date: 20101027
  Serious: Yes (Life-Threatening, Hospitalization)
  Sender: FDA-Public Use
  Company Number: DE-BRISTOL-MYERS SQUIBB COMPANY-15103211

PATIENT
  Age: 71 Year
  Sex: Female
  Weight: 75 kg

DRUGS (7)
  1. GLUCOPHAGE [Suspect]
     Indication: TYPE 2 DIABETES MELLITUS
     Dosage: COATED TABLET
     Route: 048
     Dates: start: 20100201
  2. MARCUMAR [Suspect]
     Dosage: MARCUMAR 3 MG (0.5 DF ON 6 DAYS/WEEK AND 1 DF ONCE WEEKLY)  ALSO TAKEN 1DF/WEEK,1DF/DAY,2010
     Route: 048
     Dates: start: 20100101
  3. METOPROLOL SUCCINATE [Concomitant]
     Dosage: BELOC ZOK MITE 47.5
  4. BLOPRESS PLUS [Concomitant]
     Dosage: 0.5DF=16MG +12.5MG
  5. TORASEMIDE [Concomitant]
  6. NOVODIGAL [Concomitant]
     Dosage: NOVODIGAL 0.2
  7. LEVOTHYROXINE SODIUM [Concomitant]
     Dosage: L-THYROXINE 75

REACTIONS (2)
  - EPISTAXIS [None]
  - INTERNATIONAL NORMALISED RATIO INCREASED [None]
